FAERS Safety Report 16647304 (Version 2)
Quarter: 2021Q2

REPORT INFORMATION
  Report Type: Spontaneous
  Country: US (occurrence: US)
  Receive Date: 20190730
  Receipt Date: 20210622
  Transmission Date: 20210716
  Serious: Yes (Other)
  Sender: FDA-Public Use
  Company Number: US-PFIZER INC-2018480975

PATIENT
  Age: 52 Year
  Sex: Female
  Weight: 50.79 kg

DRUGS (1)
  1. DEPO?MEDROL [Suspect]
     Active Substance: METHYLPREDNISOLONE ACETATE
     Dosage: UNK

REACTIONS (2)
  - Muscle atrophy [Not Recovered/Not Resolved]
  - Overdose [Unknown]
